FAERS Safety Report 7795788-6 (Version None)
Quarter: 2011Q4

REPORT INFORMATION
  Report Type: 
  Country: None (occurrence: None)
  Receive Date: 20111004
  Receipt Date: 20110928
  Transmission Date: 20120403
  Serious: Yes (Other)
  Sender: FDA-Public Use
  Company Number: US-PFIZER INC-2011214019

PATIENT
  Sex: Female
  Weight: 56.689 kg

DRUGS (5)
  1. ATENOLOL [Concomitant]
     Indication: HYPERTENSION
     Dosage: 0.5 DF, 1X/DAY
     Route: 048
     Dates: start: 20110101
  2. AZITHROMYCIN [Suspect]
     Indication: INFECTION PARASITIC
     Dosage: 250 MG, 1X/DAY
     Route: 048
     Dates: start: 20110829, end: 20110906
  3. CLINDAMYCIN HCL [Suspect]
     Indication: INFECTION PARASITIC
     Dosage: 600 MG, 2X/DAY
     Route: 048
     Dates: start: 20110902
  4. LEVOTHYROXINE [Concomitant]
     Indication: HYPOTHYROIDISM
     Dosage: 25 UG, 1X/DAY
     Route: 048
  5. QUININE [Suspect]
     Indication: INFECTION PARASITIC
     Dosage: 324 MG, 2 CAPS
     Route: 048
     Dates: start: 20110907, end: 20110908

REACTIONS (3)
  - TINNITUS [None]
  - DEAFNESS BILATERAL [None]
  - HYPOACUSIS [None]
